FAERS Safety Report 6554370-9 (Version None)
Quarter: 2010Q1

REPORT INFORMATION
  Report Type: 
  Country: None (occurrence: None)
  Receive Date: 20100127
  Receipt Date: 20100119
  Transmission Date: 20100710
  Serious: Yes (Disabling)
  Sender: FDA-Public Use
  Company Number: B0627359A

PATIENT
  Sex: Female

DRUGS (10)
  1. PAROXETINE HCL [Suspect]
     Route: 048
     Dates: start: 20010201
  2. VENLAFAXINE [Suspect]
     Route: 048
     Dates: start: 20040401
  3. AMITRIPTYLINE HCL [Suspect]
     Route: 048
     Dates: start: 20040601
  4. CITALOPRAM [Suspect]
     Route: 048
     Dates: start: 20001201
  5. FLUOXETINE [Suspect]
     Route: 048
     Dates: start: 20000101
  6. DOTHIEPIN HYDROCHLORIDE [Suspect]
     Route: 048
     Dates: start: 20011001
  7. LOFEPRAMINE [Suspect]
     Route: 065
     Dates: start: 20040301
  8. MIRTAZAPINE [Suspect]
     Route: 065
     Dates: start: 20010701
  9. LOSARTAN POTASSIUM [Concomitant]
     Route: 065
     Dates: start: 20040301
  10. OMEPRAZOLE [Concomitant]
     Indication: GASTRITIS
     Route: 048
     Dates: start: 20030701

REACTIONS (3)
  - EYE PRURITUS [None]
  - EYELID OEDEMA [None]
  - INFLAMMATION [None]
